FAERS Safety Report 9875516 (Version 1)
Quarter: 2014Q1

REPORT INFORMATION
  Report Type: Report from Study
  Country: DE (occurrence: DE)
  Receive Date: 20140206
  Receipt Date: 20140206
  Transmission Date: 20141002
  Serious: Yes (Other)
  Sender: FDA-Public Use
  Company Number: DE-ROCHE-1342814

PATIENT
  Age: 43 Year
  Sex: Female
  Weight: 70.6 kg

DRUGS (4)
  1. PERTUZUMAB [Suspect]
     Indication: BREAST CANCER
     Dosage: DATE OF LAST DOSE PRIOR TO SAE : 06/NOV/2013
     Route: 042
     Dates: start: 20130814, end: 20131113
  2. TRASTUZUMAB [Suspect]
     Indication: BREAST CANCER
     Dosage: DATE OF LAST DOSE PRIOR TO SAE : 06/NOV/2013.
     Route: 042
     Dates: start: 20130814, end: 20131113
  3. EPIRUBICIN [Suspect]
     Indication: BREAST CANCER
     Dosage: DATE OF LAST DOSE PRIOR TO SAE 06/NOV/2013.
     Route: 042
     Dates: start: 20131106, end: 20131113
  4. CYCLOPHOSPHAMIDE [Suspect]
     Indication: BREAST CANCER
     Dosage: DATE OF LAST DOSE PRIOR TO SAE 06/NOV/2013.
     Route: 042
     Dates: start: 20131106, end: 20131113

REACTIONS (1)
  - Diarrhoea haemorrhagic [Recovered/Resolved]
